FAERS Safety Report 7913041-4 (Version None)
Quarter: 2011Q4

REPORT INFORMATION
  Report Type: 
  Country: None (occurrence: None)
  Receive Date: 20111114
  Receipt Date: 20111108
  Transmission Date: 20120403
  Serious: Yes (Death, Disabling, Other)
  Sender: FDA-Public Use
  Company Number: BR-ASTRAZENECA-2011SE67564

PATIENT
  Age: 49 Year
  Sex: Female

DRUGS (4)
  1. TAMOXIFEN CITRATE [Suspect]
     Indication: BREAST CANCER
     Route: 048
     Dates: start: 20051201, end: 20061101
  2. FULVESTRANT [Suspect]
     Route: 030
  3. ZOLEDRONIC ACID [Suspect]
     Route: 042
  4. ANASTRAZOLE [Suspect]
     Route: 048

REACTIONS (8)
  - BONE DISORDER [None]
  - MALIGNANT NEOPLASM OF CHOROID [None]
  - LUNG DISORDER [None]
  - METASTATIC NEOPLASM [None]
  - TUMOUR MARKER INCREASED [None]
  - SPINAL CORD COMPRESSION [None]
  - VISUAL ACUITY REDUCED [None]
  - METASTASES TO CENTRAL NERVOUS SYSTEM [None]
